FAERS Safety Report 6709169-7 (Version None)
Quarter: 2010Q2

REPORT INFORMATION
  Report Type: 
  Country: None (occurrence: None)
  Receive Date: 20100504
  Receipt Date: 20100423
  Transmission Date: 20101027
  Serious: No
  Sender: FDA-Public Use
  Company Number: US-ROXANE LABORATORIES, INC.-2010-RO-00265RO

PATIENT
  Sex: Male
  Weight: 100 kg

DRUGS (7)
  1. LIDOCAINE [Suspect]
     Indication: PAIN
     Route: 061
     Dates: start: 20100311
  2. ORAJEL [Concomitant]
     Indication: HYPOAESTHESIA
  3. ORAJEL [Concomitant]
     Indication: PAIN
  4. ANBESOL GEL [Concomitant]
     Indication: HYPOAESTHESIA
  5. ANBESOL GEL [Concomitant]
     Indication: PAIN
  6. HYDROCODONE BITARTRATE [Concomitant]
     Indication: PAIN
     Dosage: 10 MG
  7. HYDROCODONE BITARTRATE [Concomitant]
     Indication: HYPOAESTHESIA

REACTIONS (3)
  - DRUG INEFFECTIVE [None]
  - PRODUCT CONTAINER SEAL ISSUE [None]
  - PRODUCT PACKAGING QUANTITY ISSUE [None]
